FAERS Safety Report 12497779 (Version 1)
Quarter: 2016Q2

REPORT INFORMATION
  Report Type: Spontaneous
  Country: DE (occurrence: DE)
  Receive Date: 20160625
  Receipt Date: 20160625
  Transmission Date: 20160815
  Serious: Yes (Other)
  Sender: FDA-Public Use
  Company Number: DE-ELI_LILLY_AND_COMPANY-DE201606004688

PATIENT
  Age: 65 Year
  Sex: Female
  Weight: 82 kg

DRUGS (1)
  1. YENTREVE [Suspect]
     Active Substance: DULOXETINE HYDROCHLORIDE
     Indication: URINARY INCONTINENCE
     Dosage: 40 MG, BID
     Route: 048
     Dates: start: 20120815, end: 20160420

REACTIONS (6)
  - Parkinsonism [Unknown]
  - Bradykinesia [Unknown]
  - Head titubation [Recovered/Resolved]
  - Mobility decreased [Recovered/Resolved]
  - Fine motor skill dysfunction [Recovered/Resolved]
  - Tremor [Recovered/Resolved]

NARRATIVE: CASE EVENT DATE: 201604
